FAERS Safety Report 4452947-8 (Version None)
Quarter: 2004Q3

REPORT INFORMATION
  Report Type: 
  Country: None (occurrence: None)
  Receive Date: 20040916
  Receipt Date: 20040818
  Transmission Date: 20050211
  Serious: Yes (Hospitalization)
  Sender: FDA-Public Use
  Company Number: 2004-119522-NL

PATIENT
  Age: 47 Year
  Sex: Female
  Weight: 72.7 kg

DRUGS (6)
  1. NUVARING [Suspect]
     Indication: CONTRACEPTION
     Dosage: VAGINAL, INSERT 1 RING FOR 21 DAYS AND REMOVE FOR 7 DAYS
     Dates: start: 20040119, end: 20040809
  2. CALCIUM TABS [Concomitant]
  3. MAGNESIUM TABS [Concomitant]
  4. MULTI-VITAMINS [Concomitant]
  5. FISH OIL [Concomitant]
  6. DOXYLAMINE SUCCINATE [Concomitant]

REACTIONS (3)
  - CEREBROVASCULAR ACCIDENT [None]
  - DYSARTHRIA [None]
  - SENSATION OF HEAVINESS [None]
